FAERS Safety Report 6128454-3 (Version None)
Quarter: 2009Q1

REPORT INFORMATION
  Report Type: 
  Country: None (occurrence: None)
  Receive Date: 20090323
  Receipt Date: 20090316
  Transmission Date: 20090719
  Serious: Yes (Hospitalization)
  Sender: FDA-Public Use
  Company Number: JP-AVENTIS-200910759JP

PATIENT
  Age: 51 Year
  Sex: Female

DRUGS (1)
  1. ALLEGRA [Suspect]
     Route: 048
     Dates: start: 20090301

REACTIONS (3)
  - BLISTER [None]
  - ECZEMA [None]
  - INTENTIONAL DRUG MISUSE [None]
